FAERS Safety Report 8019416-X (Version None)
Quarter: 2012Q1

REPORT INFORMATION
  Report Type: 
  Country: None (occurrence: None)
  Receive Date: 20120103
  Receipt Date: 20111227
  Transmission Date: 20120608
  Serious: Yes (Other)
  Sender: FDA-Public Use
  Company Number: PHHY2011DE19233

PATIENT
  Sex: Male

DRUGS (7)
  1. VOLTAREN [Suspect]
     Dosage: TID
     Route: 048
     Dates: start: 20110101, end: 20110101
  2. VOLTAREN [Suspect]
     Indication: INTERVERTEBRAL DISC PROTRUSION
     Route: 048
  3. VOLTAREN [Suspect]
     Dosage: BID
     Route: 048
     Dates: start: 20110101, end: 20110101
  4. VOLTAREN [Suspect]
     Indication: INTERVERTEBRAL DISC PROTRUSION
     Dosage: UNK
  5. VOLTAREN [Suspect]
     Dosage: ONCE DAILY
     Route: 048
     Dates: start: 20111101
  6. OMEPRAZOLE [Concomitant]
     Indication: ABDOMINAL DISCOMFORT
     Dosage: 20 MG, ONCE DAILY LATER TWICE DAILY
  7. VOLTAREN [Suspect]
     Dosage: 2 DF, TID
     Route: 048

REACTIONS (7)
  - BURN OESOPHAGEAL [None]
  - OVERDOSE [None]
  - RESPIRATORY TRACT INFECTION [None]
  - INFLUENZA LIKE ILLNESS [None]
  - BURNING SENSATION [None]
  - ANGINA PECTORIS [None]
  - CHEST PAIN [None]
